FAERS Safety Report 22155727 (Version 1)
Quarter: 2023Q1

REPORT INFORMATION
  Report Type: Spontaneous
  Country: CN (occurrence: None)
  Receive Date: 20230330
  Receipt Date: 20230330
  Transmission Date: 20230418
  Serious: Yes (Other)
  Sender: FDA-Public Use
  Company Number: CN-ROCHE-3319492

PATIENT
  Age: 72 Year
  Sex: Female

DRUGS (37)
  1. MABTHERA [Suspect]
     Active Substance: RITUXIMAB
     Indication: Diffuse large B-cell lymphoma
     Dosage: R-CHOP FOR 4 CYCLES
     Route: 065
     Dates: start: 201709
  2. MABTHERA [Suspect]
     Active Substance: RITUXIMAB
     Dosage: R-CHOP FOR 2 CYCLES
     Route: 065
     Dates: start: 201712
  3. MABTHERA [Suspect]
     Active Substance: RITUXIMAB
     Dosage: R FOR 2 CYCLES
     Route: 065
  4. MABTHERA [Suspect]
     Active Substance: RITUXIMAB
     Dosage: R-CDOP FOR 4 CYCLES
     Route: 065
     Dates: start: 202001
  5. MABTHERA [Suspect]
     Active Substance: RITUXIMAB
     Dosage: R-CDOP FOR 2 CYCLES
     Route: 065
     Dates: start: 202004
  6. MABTHERA [Suspect]
     Active Substance: RITUXIMAB
     Dosage: R2 FOR 2 CYCLES
     Route: 065
     Dates: start: 2020
  7. MABTHERA [Suspect]
     Active Substance: RITUXIMAB
     Dosage: R-GEMOX
     Route: 065
     Dates: start: 20220216
  8. MABTHERA [Suspect]
     Active Substance: RITUXIMAB
     Dosage: POLA + BR
     Route: 065
     Dates: start: 20220322
  9. GAZYVA [Suspect]
     Active Substance: OBINUTUZUMAB
     Indication: Diffuse large B-cell lymphoma
     Dosage: G-GEMOX + ORELABRUTINIB
     Route: 042
     Dates: start: 20220304
  10. POLIVY [Suspect]
     Active Substance: POLATUZUMAB VEDOTIN-PIIQ
     Indication: Diffuse large B-cell lymphoma
     Dosage: POLA + BR
     Route: 065
     Dates: start: 20220322
  11. CYCLOPHOSPHAMIDE [Concomitant]
     Active Substance: CYCLOPHOSPHAMIDE
     Indication: Diffuse large B-cell lymphoma
     Dosage: R-CHOP FOR 4 CYCLES
     Dates: start: 201709
  12. CYCLOPHOSPHAMIDE [Concomitant]
     Active Substance: CYCLOPHOSPHAMIDE
     Dosage: R-CHOP FOR 2 CYCLES
     Dates: start: 201712
  13. CYCLOPHOSPHAMIDE [Concomitant]
     Active Substance: CYCLOPHOSPHAMIDE
     Dosage: R-CDOP FOR 4 CYCLES
     Dates: start: 202001
  14. CYCLOPHOSPHAMIDE [Concomitant]
     Active Substance: CYCLOPHOSPHAMIDE
     Dosage: R-CDOP FOR 2 CYCLES
     Dates: start: 202004
  15. CYCLOPHOSPHAMIDE [Concomitant]
     Active Substance: CYCLOPHOSPHAMIDE
     Dates: start: 20220411
  16. DOXORUBICIN [Concomitant]
     Active Substance: DOXORUBICIN
     Indication: Diffuse large B-cell lymphoma
     Dosage: R-CHOP FOR 4 CYCLES
     Dates: start: 201709
  17. DOXORUBICIN [Concomitant]
     Active Substance: DOXORUBICIN
     Dosage: R-CHOP FOR 2 CYCLES
     Dates: start: 201712
  18. VINCRISTINE [Concomitant]
     Active Substance: VINCRISTINE
     Indication: Diffuse large B-cell lymphoma
     Dosage: R-CHOP FOR 4 CYCLES
     Dates: start: 201709
  19. VINCRISTINE [Concomitant]
     Active Substance: VINCRISTINE
     Dosage: R-CHOP FOR 2 CYCLES
     Dates: start: 201712
  20. VINCRISTINE [Concomitant]
     Active Substance: VINCRISTINE
     Dosage: R-CDOP FOR 4 CYCLES
     Dates: start: 202001
  21. VINCRISTINE [Concomitant]
     Active Substance: VINCRISTINE
     Dosage: R-CDOP FOR 2 CYCLES
     Dates: start: 202004
  22. PREDNISONE [Concomitant]
     Active Substance: PREDNISONE
     Indication: Diffuse large B-cell lymphoma
     Dosage: R-CHOP FOR 4 CYCLES
     Dates: start: 201709
  23. PREDNISONE [Concomitant]
     Active Substance: PREDNISONE
     Dosage: R-CHOP FOR 2 CYCLES
     Dates: start: 201712
  24. PREDNISONE [Concomitant]
     Active Substance: PREDNISONE
     Dosage: R-CDOP FOR 4 CYCLES
     Dates: start: 202001
  25. PREDNISONE [Concomitant]
     Active Substance: PREDNISONE
     Dosage: R-CDOP FOR 2 CYCLES
     Dates: start: 202004
  26. DOXORUBICIN HYDROCHLORIDE [Concomitant]
     Active Substance: DOXORUBICIN HYDROCHLORIDE
     Indication: Diffuse large B-cell lymphoma
     Dosage: R-CDOP FOR 4 CYCLES
     Dates: start: 202001
  27. DOXORUBICIN HYDROCHLORIDE [Concomitant]
     Active Substance: DOXORUBICIN HYDROCHLORIDE
     Dosage: R-CDOP FOR 2 CYCLES
     Dates: start: 202004
  28. LENALIDOMIDE [Concomitant]
     Active Substance: LENALIDOMIDE
     Indication: Diffuse large B-cell lymphoma
     Dosage: R2 FOR 2 CYCLES
     Dates: start: 2020
  29. ZANUBRUTINIB [Concomitant]
     Active Substance: ZANUBRUTINIB
     Indication: Diffuse large B-cell lymphoma
     Dates: start: 20220205
  30. GEMCITABINE [Concomitant]
     Active Substance: GEMCITABINE
     Indication: Diffuse large B-cell lymphoma
     Dosage: R-GEMOX
     Dates: start: 20220216
  31. GEMCITABINE [Concomitant]
     Active Substance: GEMCITABINE
     Dosage: G-GEMOX + ORELABRUTINIB
     Dates: start: 20220304
  32. OXALIPLATIN [Concomitant]
     Active Substance: OXALIPLATIN
     Indication: Diffuse large B-cell lymphoma
     Dosage: R-GEMOX
     Dates: start: 20220216
  33. OXALIPLATIN [Concomitant]
     Active Substance: OXALIPLATIN
     Dosage: G-GEMOX + ORELABRUTINIB
     Dates: start: 20220304
  34. ORELABRUTINIB [Concomitant]
     Active Substance: ORELABRUTINIB
     Indication: Diffuse large B-cell lymphoma
     Dosage: G-GEMOX + ORELABRUTINIB
     Dates: start: 20220304
  35. BENDAMUSTINE [Concomitant]
     Active Substance: BENDAMUSTINE
     Indication: Diffuse large B-cell lymphoma
     Dosage: POLA + BR
     Dates: start: 20220322
  36. FLUDARABINE [Concomitant]
     Active Substance: FLUDARABINE PHOSPHATE
     Indication: Diffuse large B-cell lymphoma
     Dates: start: 20220411
  37. DEXAMETHASONE [Concomitant]
     Active Substance: DEXAMETHASONE
     Indication: Diffuse large B-cell lymphoma

REACTIONS (5)
  - Staphylococcal infection [Unknown]
  - Proteus infection [Unknown]
  - Cytokine release syndrome [Unknown]
  - Immune effector cell-associated neurotoxicity syndrome [Unknown]
  - Off label use [Unknown]

NARRATIVE: CASE EVENT DATE: 20220205
